FAERS Safety Report 24102493 (Version 1)
Quarter: 2024Q3

REPORT INFORMATION
  Report Type: Other
  Country: IE (occurrence: IE)
  Receive Date: 20240717
  Receipt Date: 20240717
  Transmission Date: 20241017
  Serious: Yes (Hospitalization, Other)
  Sender: BIONPHARMA
  Company Number: IE-Bion-013441

PATIENT
  Sex: Male

DRUGS (10)
  1. CARBAMAZEPINE [Suspect]
     Active Substance: CARBAMAZEPINE
     Indication: Sleep related hypermotor epilepsy
  2. OXCARBAZEPINE [Suspect]
     Active Substance: OXCARBAZEPINE
     Indication: Sleep related hypermotor epilepsy
  3. CLOBAZAM [Suspect]
     Active Substance: CLOBAZAM
     Indication: Sleep related hypermotor epilepsy
  4. VALPROIC ACID [Suspect]
     Active Substance: VALPROIC ACID
     Indication: Sleep related hypermotor epilepsy
  5. ESLICARBAZEPINE [Concomitant]
     Active Substance: ESLICARBAZEPINE
     Indication: Sleep related hypermotor epilepsy
  6. LAMOTRIGINE [Concomitant]
     Active Substance: LAMOTRIGINE
     Indication: Sleep related hypermotor epilepsy
  7. LACOSAMIDE [Concomitant]
     Active Substance: LACOSAMIDE
     Indication: Sleep related hypermotor epilepsy
  8. LEVETIRACETAM [Concomitant]
     Active Substance: LEVETIRACETAM
     Indication: Sleep related hypermotor epilepsy
  9. BRIVARACETAM [Concomitant]
     Active Substance: BRIVARACETAM
     Indication: Sleep related hypermotor epilepsy
  10. PERAMPANEL [Concomitant]
     Active Substance: PERAMPANEL
     Indication: Sleep related hypermotor epilepsy

REACTIONS (2)
  - Inappropriate antidiuretic hormone secretion [Unknown]
  - Drug ineffective [Not Recovered/Not Resolved]
